FAERS Safety Report 13203132 (Version 1)
Quarter: 2017Q1

REPORT INFORMATION
  Report Type: Spontaneous
  Country: US (occurrence: US)
  Receive Date: 20170209
  Receipt Date: 20170209
  Transmission Date: 20170428
  Serious: No
  Sender: FDA-Public Use
  Company Number: US-VERTEX PHARMACEUTICALS-2017-000668

PATIENT
  Age: 10 Year
  Sex: Male

DRUGS (1)
  1. ORKAMBI [Suspect]
     Active Substance: IVACAFTOR\LUMACAFTOR
     Indication: CYSTIC FIBROSIS
     Dosage: 2 DF, BID (100/ 125MG EACH)
     Route: 048
     Dates: start: 20150914

REACTIONS (1)
  - Pulmonary function test abnormal [Unknown]

NARRATIVE: CASE EVENT DATE: 20170127
